FAERS Safety Report 8573478-X (Version None)
Quarter: 2012Q3

REPORT INFORMATION
  Report Type: 
  Country: None (occurrence: None)
  Receive Date: 20120806
  Receipt Date: 20120727
  Transmission Date: 20120928
  Serious: Yes (Hospitalization)
  Sender: FDA-Public Use
  Company Number: JP-ELI_LILLY_AND_COMPANY-JP201112002084

PATIENT
  Age: 52 Year
  Sex: Male

DRUGS (9)
  1. LASIX [Concomitant]
     Dosage: 1 DF, QD
     Route: 048
     Dates: start: 20100101
  2. ALLOPURINOL [Concomitant]
     Dosage: 2 DF, QD
     Route: 048
     Dates: start: 20100101
  3. URALYT                             /01779901/ [Concomitant]
     Dosage: 2 DF, QD
     Route: 048
     Dates: start: 20100101
  4. ADCIRCA [Suspect]
     Indication: PULMONARY ARTERIAL HYPERTENSION
     Dosage: 40 MG, QD
     Route: 048
     Dates: start: 20110501, end: 20110601
  5. TRACLEER [Concomitant]
     Dosage: UNK
     Route: 048
     Dates: start: 20100101
  6. FAMOTIDINE [Concomitant]
     Dosage: 1 DF, QD
     Route: 048
     Dates: start: 20100101
  7. FERROUS CITRATE [Concomitant]
     Dosage: 2 DF, UNK
     Route: 048
     Dates: start: 20110621
  8. ASPIRIN [Concomitant]
     Dosage: 1 DF, QD
     Route: 048
     Dates: start: 20100101
  9. SOTALOL HYDROCHLORIDE [Concomitant]
     Dosage: 3 DF, QD
     Route: 048
     Dates: start: 20100101

REACTIONS (1)
  - CARDIAC FAILURE [None]
